FAERS Safety Report 4368341-4 (Version None)
Quarter: 2004Q2

REPORT INFORMATION
  Report Type: 
  Country: None (occurrence: None)
  Receive Date: 20040525
  Receipt Date: 20040518
  Transmission Date: 20050107
  Serious: Yes (Hospitalization)
  Sender: FDA-Public Use
  Company Number: STA-AE-04-MTX-130

PATIENT
  Age: 67 Year
  Sex: Male

DRUGS (5)
  1. METHOTREXATE [Suspect]
     Indication: POLYARTHRITIS
     Dosage: 10 MG 1X PER 1 WK, ORAL
     Route: 048
     Dates: start: 20030301, end: 20040203
  2. ROCEPHIN [Suspect]
     Dosage: IM
     Route: 030
     Dates: start: 20040123, end: 20040126
  3. FLECAINIDE ACETATE [Concomitant]
  4. PREVISCAN (FLUINDIONE) [Concomitant]
  5. CORTICOSTEROIDS (CORTICOSTEROIDS) [Concomitant]

REACTIONS (3)
  - LEUKOPENIA [None]
  - NEUTROPENIA [None]
  - PERITONSILLAR ABSCESS [None]
